FAERS Safety Report 5329241-6 (Version None)
Quarter: 2007Q2

REPORT INFORMATION
  Report Type: 
  Country: None (occurrence: None)
  Receive Date: 20070518
  Receipt Date: 20070508
  Transmission Date: 20071010
  Serious: Yes (Death, Hospitalization)
  Sender: FDA-Public Use
  Company Number: US-PFIZER INC-2007037281

PATIENT

DRUGS (2)
  1. BEXTRA [Suspect]
     Dates: start: 20020801, end: 20020911
  2. CELEBREX [Suspect]
     Dates: start: 20040512, end: 20040701

REACTIONS (1)
  - CEREBROVASCULAR ACCIDENT [None]
